FAERS Safety Report 9345427 (Version 2)
Quarter: 2013Q3

REPORT INFORMATION
  Report Type: Spontaneous
  Country: US (occurrence: US)
  Receive Date: 20130613
  Receipt Date: 20130708
  Transmission Date: 20140515
  Serious: No
  Sender: FDA-Public Use
  Company Number: US-B.I. PHARMACEUTICALS,INC./RIDGEFIELD-2013-BI-16146BP

PATIENT
  Age: 69 Year
  Sex: Male
  Weight: 110 kg

DRUGS (6)
  1. SPIRIVA [Suspect]
     Indication: ASTHMA
     Dosage: 18 MCG
     Route: 055
     Dates: start: 20130603
  2. ALLOPURINOL [Concomitant]
     Indication: GOUT
     Dosage: 100 MG
     Route: 048
     Dates: start: 2010
  3. SINGULAIR [Concomitant]
     Indication: ASTHMA
     Dosage: 10 MG
     Route: 048
     Dates: start: 2003
  4. CREON [Concomitant]
     Indication: PANCREATIC ENZYME ABNORMALITY
     Dosage: 24000 U
     Route: 048
     Dates: start: 1973
  5. IRBESARTAN [Concomitant]
     Indication: HYPERTENSION
     Dosage: 150 MG
     Route: 048
     Dates: start: 2003
  6. PROTONIX [Concomitant]
     Indication: DYSPEPSIA
     Dosage: 40 MG
     Route: 048
     Dates: start: 2003

REACTIONS (5)
  - Headache [Not Recovered/Not Resolved]
  - Myalgia [Not Recovered/Not Resolved]
  - Fatigue [Not Recovered/Not Resolved]
  - Lacrimation increased [Not Recovered/Not Resolved]
  - Dyspnoea [Not Recovered/Not Resolved]
